FAERS Safety Report 23560801 (Version 1)
Quarter: 2024Q1

REPORT INFORMATION
  Report Type: Spontaneous
  Country: CA (occurrence: CA)
  Receive Date: 20240223
  Receipt Date: 20240223
  Transmission Date: 20240409
  Serious: Yes (Other)
  Sender: FDA-Public Use
  Company Number: CA-ANIPHARMA-2024-CA-001238

PATIENT
  Age: 70 Year
  Sex: Female
  Weight: 58.51 kg

DRUGS (1)
  1. CANDESARTAN [Suspect]
     Active Substance: CANDESARTAN
     Indication: Hypertension
     Dosage: 16 MG DAILY
     Route: 048
     Dates: start: 20110712, end: 20111211

REACTIONS (2)
  - Palpitations [Unknown]
  - Flushing [Unknown]
